FAERS Safety Report 9300856 (Version 1)
Quarter: 2013Q2

REPORT INFORMATION
  Report Type: Report from Study
  Country: ES (occurrence: ES)
  Receive Date: 20130521
  Receipt Date: 20130521
  Transmission Date: 20140414
  Serious: Yes (Life-Threatening, Hospitalization)
  Sender: FDA-Public Use
  Company Number: ES-SANOFI-AVENTIS-2013SA050492

PATIENT
  Age: 75 Year
  Sex: Male

DRUGS (6)
  1. RAMIPRIL [Suspect]
     Indication: HYPERTENSION
     Route: 048
     Dates: start: 200601, end: 20120202
  2. FUROSEMIDE [Interacting]
     Indication: RENAL FAILURE CHRONIC
     Route: 048
     Dates: start: 200604, end: 20120202
  3. SPIRONOLACTONE [Interacting]
     Indication: RENAL FAILURE CHRONIC
     Route: 048
     Dates: start: 200606, end: 20120202
  4. NSAID^S [Interacting]
     Indication: PAIN
     Route: 048
     Dates: start: 20120113, end: 20120119
  5. DIANBEN [Concomitant]
     Indication: TYPE 2 DIABETES MELLITUS
     Route: 048
     Dates: start: 200606, end: 20120202
  6. ZALDIAR [Concomitant]
     Indication: PAIN
     Route: 048
     Dates: start: 20120125, end: 20120202

REACTIONS (2)
  - Uraemic encephalopathy [Recovered/Resolved]
  - Renal failure acute [Recovered/Resolved]
